FAERS Safety Report 25430035 (Version 3)
Quarter: 2025Q3

REPORT INFORMATION
  Report Type: Spontaneous
  Country: US (occurrence: US)
  Receive Date: 20250612
  Receipt Date: 20250922
  Transmission Date: 20251020
  Serious: No
  Sender: SANOFI AVENTIS
  Company Number: US-SA-2025SA166209

PATIENT
  Age: 39 Year
  Sex: Male

DRUGS (1)
  1. DUPIXENT [Suspect]
     Active Substance: DUPILUMAB
     Indication: Dermatitis atopic
     Dosage: 300 MG, QOW
     Route: 058

REACTIONS (7)
  - Eye disorder [Unknown]
  - Fatigue [Unknown]
  - Headache [Unknown]
  - Dermatitis atopic [Recovering/Resolving]
  - Acne [Recovering/Resolving]
  - Therapeutic response shortened [Recovering/Resolving]
  - Drug ineffective [Unknown]
